FAERS Safety Report 24679269 (Version 2)
Quarter: 2025Q1

REPORT INFORMATION
  Report Type: Spontaneous
  Country: GB (occurrence: GB)
  Receive Date: 20241129
  Receipt Date: 20250131
  Transmission Date: 20250409
  Serious: Yes (Other)
  Sender: RANBAXY
  Company Number: GB-MHRA-EMIS-7213-4d5c3216-e794-41ba-9549-cf0da8748645

PATIENT
  Age: 67 Year
  Sex: Female
  Weight: 55 kg

DRUGS (1)
  1. ATORVASTATIN [Suspect]
     Active Substance: ATORVASTATIN
     Indication: Product used for unknown indication
     Dosage: ONE TO BE TAKEN EACH DAY
     Route: 065
     Dates: start: 20240514

REACTIONS (1)
  - Memory impairment [Recovering/Resolving]

NARRATIVE: CASE EVENT DATE: 20240528
